FAERS Safety Report 7576160-0 (Version None)
Quarter: 2011Q2

REPORT INFORMATION
  Report Type: 
  Country: None (occurrence: None)
  Receive Date: 20110623
  Receipt Date: 20110623
  Transmission Date: 20111010
  Serious: Yes (Hospitalization)
  Sender: FDA-Public Use
  Company Number: None

PATIENT
  Age: 78 Year
  Sex: Male

DRUGS (1)
  1. REVLIMID [Suspect]
     Indication: MULTIPLE MYELOMA
     Dosage: REVLIMID 10MG 10MG DAILY X21DAYS PO
     Route: 048
     Dates: start: 20110519, end: 20110608

REACTIONS (2)
  - RASH GENERALISED [None]
  - OEDEMA PERIPHERAL [None]
